FAERS Safety Report 7671541-9 (Version None)
Quarter: 2011Q3

REPORT INFORMATION
  Report Type: 
  Country: None (occurrence: None)
  Receive Date: 20110809
  Receipt Date: 20110809
  Transmission Date: 20111222
  Serious: Yes (Hospitalization)
  Sender: FDA-Public Use
  Company Number: None

PATIENT
  Sex: Female
  Weight: 47.7 kg

DRUGS (11)
  1. QUINAPRIL HCL [Concomitant]
     Route: 048
  2. CRESTOR [Concomitant]
     Route: 048
  3. TRICOR [Concomitant]
     Route: 048
  4. PRADAXA [Suspect]
     Indication: ATRIAL FIBRILLATION
     Dosage: 150 MG
     Route: 048
  5. POTASSIUM CHLORIDE [Concomitant]
     Route: 048
  6. AMLODIPINE [Concomitant]
     Route: 048
  7. CITRICAL-D [Concomitant]
     Route: 048
  8. DIGOXIN [Concomitant]
     Route: 048
  9. LASIX [Concomitant]
     Route: 048
  10. LOPERAMIDE HCL [Concomitant]
     Route: 048
  11. PRADAXA [Concomitant]
     Route: 048

REACTIONS (2)
  - CARDIAC FAILURE CONGESTIVE [None]
  - LOWER GASTROINTESTINAL HAEMORRHAGE [None]
